FAERS Safety Report 15818856 (Version 6)
Quarter: 2020Q4

REPORT INFORMATION
  Report Type: Spontaneous
  Country: IE (occurrence: IE)
  Receive Date: 20190113
  Receipt Date: 20201217
  Transmission Date: 20210113
  Serious: Yes (Life-Threatening, Hospitalization, Other)
  Sender: FDA-Public Use
  Company Number: IE-AMGEN-IRLSP2019005560

PATIENT
  Age: 43 Year
  Sex: Female

DRUGS (1)
  1. AIMOVIG [Suspect]
     Active Substance: ERENUMAB-AOOE
     Indication: MIGRAINE
     Dosage: 70 MG (ONE INJECTION)
     Route: 042
     Dates: start: 20181205

REACTIONS (23)
  - Headache [Recovering/Resolving]
  - Myalgia [Recovering/Resolving]
  - Incorrect route of product administration [Unknown]
  - Liver function test abnormal [Recovering/Resolving]
  - Eosinophil count increased [Recovering/Resolving]
  - Influenza like illness [Recovering/Resolving]
  - Nausea [Recovering/Resolving]
  - Drug eruption [Recovered/Resolved]
  - Dehydration [Recovering/Resolving]
  - Dizziness [Recovering/Resolving]
  - Malaise [Recovering/Resolving]
  - Drug reaction with eosinophilia and systemic symptoms [Recovered/Resolved]
  - Pain [Recovering/Resolving]
  - Rash pruritic [Recovered/Resolved]
  - Chills [Unknown]
  - Drug hypersensitivity [Recovering/Resolving]
  - Rash [Recovered/Resolved]
  - Rash [Recovered/Resolved]
  - Shock [Recovering/Resolving]
  - Fatigue [Recovering/Resolving]
  - Vomiting [Recovering/Resolving]
  - Pruritus [Recovering/Resolving]
  - Pyrexia [Recovering/Resolving]

NARRATIVE: CASE EVENT DATE: 201812
